FAERS Safety Report 23472058 (Version 3)
Quarter: 2025Q1

REPORT INFORMATION
  Report Type: Spontaneous
  Country: US (occurrence: US)
  Receive Date: 20240202
  Receipt Date: 20250227
  Transmission Date: 20250409
  Serious: No
  Sender: BIOMARIN
  Company Number: US-SA-SAC20240124001382

PATIENT

DRUGS (3)
  1. ALDURAZYME [Suspect]
     Active Substance: LARONIDASE
     Indication: Mucopolysaccharidosis I
     Dosage: 17 MG, QW
     Dates: start: 202305
  2. ALDURAZYME [Suspect]
     Active Substance: LARONIDASE
     Dosage: 20 MG, QW
  3. EPINEPHRINE [Concomitant]
     Active Substance: EPINEPHRINE
     Indication: Product used for unknown indication

REACTIONS (2)
  - Influenza [Unknown]
  - Weight increased [Unknown]

NARRATIVE: CASE EVENT DATE: 20240108
